FAERS Safety Report 7266663-0 (Version None)
Quarter: 2011Q1

REPORT INFORMATION
  Report Type: 
  Country: None (occurrence: None)
  Receive Date: 20110201
  Receipt Date: 20110119
  Transmission Date: 20110831
  Serious: Yes (Hospitalization)
  Sender: FDA-Public Use
  Company Number: US-BIOGENIDEC-2010BI014485

PATIENT
  Age: 54 Year
  Sex: Male
  Weight: 95 kg

DRUGS (1)
  1. TYSABRI [Suspect]
     Indication: MULTIPLE SCLEROSIS
     Route: 042
     Dates: start: 20081216

REACTIONS (8)
  - HEAD INJURY [None]
  - DYSPHONIA [None]
  - LOSS OF CONSCIOUSNESS [None]
  - FATIGUE [None]
  - FEELING COLD [None]
  - SKELETAL INJURY [None]
  - WOUND HAEMORRHAGE [None]
  - PULMONARY EMBOLISM [None]
